FAERS Safety Report 23182184 (Version 1)
Quarter: 2023Q4

REPORT INFORMATION
  Report Type: Spontaneous
  Country: CN (occurrence: CN)
  Receive Date: 20231114
  Receipt Date: 20231114
  Transmission Date: 20240110
  Serious: Yes (Hospitalization, Other)
  Sender: FDA-Public Use
  Company Number: CN-009507513-2311CHN004115

PATIENT
  Age: 55 Year
  Sex: Male

DRUGS (3)
  1. KEYTRUDA [Suspect]
     Active Substance: PEMBROLIZUMAB
     Indication: Hepatobiliary cancer
     Dosage: 200 MG, ONCE
     Route: 041
     Dates: start: 20230524, end: 20230524
  2. LENVATINIB MESYLATE [Suspect]
     Active Substance: LENVATINIB MESYLATE
     Indication: Hepatobiliary cancer
     Dosage: 8 MG, QD
     Route: 048
     Dates: start: 20230525, end: 20230609
  3. PACLITAXEL [Suspect]
     Active Substance: PACLITAXEL
     Indication: Hepatobiliary cancer
     Dosage: 200 MG, ONCE (ALSO REPORTED AS ON DAY 1 AND DAY 8)
     Route: 041
     Dates: start: 20230525, end: 20230525

REACTIONS (2)
  - Myelosuppression [Recovering/Resolving]
  - Product use issue [Unknown]

NARRATIVE: CASE EVENT DATE: 20230525
